FAERS Safety Report 13507062 (Version 1)
Quarter: 2017Q2

REPORT INFORMATION
  Report Type: Report from Study
  Country: US (occurrence: US)
  Receive Date: 20170503
  Receipt Date: 20170503
  Transmission Date: 20170830
  Serious: Yes (Hospitalization)
  Sender: FDA-Public Use
  Company Number: US-HLSUS-2017-US-000278

PATIENT
  Age: 40 Year
  Sex: Male
  Weight: 129.68 kg

DRUGS (16)
  1. NORCO [Concomitant]
     Active Substance: ACETAMINOPHEN\HYDROCODONE BITARTRATE
     Dosage: 1 TO 2 TABS 4-6 HRS. PRN FOR PAIN
     Route: 048
  2. IPRATROPIUM-ALBUTEROL 20-100 MCG [Concomitant]
     Dosage: 1 INHALATION INHALED BY MOUTH EVERY 6 HOURS AS NEEDED
  3. PROVENTIL, VENTOLIN [Concomitant]
     Dosage: TAKE 2 PUFFS INHALED BY MOUTH EVERY 4 HOURS AS NEEDED.
  4. RESTASIS [Concomitant]
     Active Substance: CYCLOSPORINE
     Indication: DRY EYE
     Dosage: INSTILL 1 DROP IN BOTH EYES EVERY 12 HOURS.
     Route: 047
  5. JANUMET XR [Concomitant]
     Active Substance: METFORMIN HYDROCHLORIDE\SITAGLIPTIN PHOSPHATE
     Dosage: 1 TABLET DAILY
     Route: 048
  6. COGENTIN [Concomitant]
     Active Substance: BENZTROPINE MESYLATE
     Dosage: 0.5 MG BY MOUTH EVERY MORNING
     Route: 048
  7. COLACE [Concomitant]
     Active Substance: DOCUSATE SODIUM
     Indication: CONSTIPATION
     Dosage: 100 MG BY MOUTH TWICE DAILY BEFORE MEALS
     Route: 048
  8. AVELOX [Concomitant]
     Active Substance: MOXIFLOXACIN HYDROCHLORIDE
     Indication: PNEUMONIA
     Dosage: 1 TABLET BY MOUTH EVERY 24 HOURS
     Route: 048
  9. HUMIBID [Concomitant]
     Active Substance: GUAIFENESIN
     Dosage: 1TABLET BY MOUTH EVERY 12 HOURS
     Route: 048
  10. RISPERIDONE. [Concomitant]
     Active Substance: RISPERIDONE
     Dosage: 3 MG BY MOUTH TWICE DAILY
     Route: 048
  11. SINGULAIR [Concomitant]
     Active Substance: MONTELUKAST SODIUM
     Dosage: 10 MG EVERY NIGHT BEDTIME
     Route: 048
  12. JANUMET XR [Concomitant]
     Active Substance: METFORMIN HYDROCHLORIDE\SITAGLIPTIN PHOSPHATE
     Dosage: 1 TABLET, ONCE A DAY
     Route: 048
  13. PRAVASTATIN. [Concomitant]
     Active Substance: PRAVASTATIN
     Dosage: 40 MG BY MOUTH EVERY EVENING
     Route: 048
  14. CLOZARIL [Suspect]
     Active Substance: CLOZAPINE
     Dosage: 400 MG EVERY NIGHT BEDTIME AND 100 MG EVERY MORNING
     Route: 048
  15. FLONASE [Concomitant]
     Active Substance: FLUTICASONE PROPIONATE
     Dosage: 1 SPRAY BY EACH NOSTRIL ROUTE ONCE A DAY
  16. SPIRIVA [Concomitant]
     Active Substance: TIOTROPIUM BROMIDE MONOHYDRATE
     Dosage: 1 CAPSULE INHALED BY MOUTH ONCE A DAY
     Route: 048

REACTIONS (55)
  - Sepsis [Unknown]
  - Pickwickian syndrome [Unknown]
  - Chest pain [Unknown]
  - Fatigue [Unknown]
  - Gastrooesophageal reflux disease [Unknown]
  - Depression [Unknown]
  - Dermatitis [Not Recovered/Not Resolved]
  - Bronchial hyperreactivity [Not Recovered/Not Resolved]
  - Nausea [Unknown]
  - Vomiting [Unknown]
  - Anxiety [Unknown]
  - Hypoxia [Unknown]
  - Drug use disorder [Unknown]
  - Varicose vein [Not Recovered/Not Resolved]
  - Pneumonia [Unknown]
  - Hallucination, auditory [Unknown]
  - Epididymitis [Unknown]
  - Schizoaffective disorder [Unknown]
  - Cough [Not Recovered/Not Resolved]
  - Hepatic steatosis [Unknown]
  - Respiratory failure [Unknown]
  - Somnolence [Unknown]
  - Chronic obstructive pulmonary disease [Unknown]
  - Sinus congestion [Unknown]
  - Ileus [Unknown]
  - Leukocytosis [Unknown]
  - Hallucination [Unknown]
  - Rhinitis allergic [Not Recovered/Not Resolved]
  - Snoring [Unknown]
  - Herpes simplex [Unknown]
  - Obesity [Unknown]
  - Pain in extremity [Unknown]
  - Neuralgia [Unknown]
  - Sleep apnoea syndrome [Not Recovered/Not Resolved]
  - Diabetes mellitus [Unknown]
  - Treatment noncompliance [Unknown]
  - Bronchitis [Unknown]
  - Prostatitis [Unknown]
  - Arthralgia [Not Recovered/Not Resolved]
  - Constipation [Not Recovered/Not Resolved]
  - Ingrowing nail [Not Recovered/Not Resolved]
  - Hyperlipidaemia [Unknown]
  - Otitis media [Unknown]
  - Caffeine consumption [Unknown]
  - Psychotic disorder [Unknown]
  - Suicidal ideation [Unknown]
  - Asthma [Unknown]
  - Prostate cancer [Unknown]
  - Seasonal allergy [Unknown]
  - Gastric ulcer [Unknown]
  - Periodic limb movement disorder [Not Recovered/Not Resolved]
  - Chronic obstructive pulmonary disease [Unknown]
  - Conjunctivitis allergic [Unknown]
  - Acne [Not Recovered/Not Resolved]
  - Labyrinthitis [Unknown]

NARRATIVE: CASE EVENT DATE: 20081120
